FAERS Safety Report 12711615 (Version 1)
Quarter: 2016Q3

REPORT INFORMATION
  Report Type: Spontaneous
  Country: ID (occurrence: ID)
  Receive Date: 20160902
  Receipt Date: 20160902
  Transmission Date: 20161109
  Serious: Yes (Other)
  Sender: FDA-Public Use
  Company Number: ALCN2016ID005886

PATIENT
  Age: 42 Year
  Sex: Male

DRUGS (1)
  1. VIGAMOX [Suspect]
     Active Substance: MOXIFLOXACIN HYDROCHLORIDE
     Indication: ULCERATIVE KERATITIS
     Dosage: 1 GTT, 6QD
     Route: 047
     Dates: start: 20160118, end: 20160124

REACTIONS (4)
  - Off label use [Unknown]
  - Ocular hyperaemia [Unknown]
  - Ulcerative keratitis [Not Recovered/Not Resolved]
  - Eye irritation [Unknown]

NARRATIVE: CASE EVENT DATE: 20160118
